FAERS Safety Report 9855870 (Version 2)
Quarter: 2014Q1

REPORT INFORMATION
  Report Type: Spontaneous
  Country: PT (occurrence: PT)
  Receive Date: 20140130
  Receipt Date: 20140130
  Transmission Date: 20141002
  Serious: Yes (Death, Hospitalization, Other)
  Sender: FDA-Public Use
  Company Number: PT-B.I. PHARMACEUTICALS,INC./RIDGEFIELD-2014-BI-01747PO

PATIENT
  Age: 84 Year
  Sex: Female
  Weight: 80 kg

DRUGS (1)
  1. PRADAXA [Suspect]
     Indication: PROPHYLAXIS
     Dosage: 220 MG
     Route: 048
     Dates: start: 20130130, end: 20131207

REACTIONS (4)
  - Diarrhoea haemorrhagic [Fatal]
  - Gastroenteritis [Fatal]
  - Anaemia [Fatal]
  - Clostridium test positive [Recovered/Resolved]
